FAERS Safety Report 12258547 (Version 1)
Quarter: 2016Q2

REPORT INFORMATION
  Report Type: Spontaneous
  Country: US (occurrence: US)
  Receive Date: 20160412
  Receipt Date: 20160412
  Transmission Date: 20160815
  Serious: No
  Sender: FDA-Public Use
  Company Number: US-SA-2015SA050675

PATIENT
  Age: 39 Year
  Sex: Female

DRUGS (2)
  1. ALLEGRA [Suspect]
     Active Substance: FEXOFENADINE HYDROCHLORIDE
     Indication: MULTIPLE ALLERGIES
     Route: 048
  2. ALLEGRA [Suspect]
     Active Substance: FEXOFENADINE HYDROCHLORIDE
     Indication: SINUSITIS
     Route: 048

REACTIONS (8)
  - Rhinorrhoea [Unknown]
  - Sinus headache [Unknown]
  - Lacrimation increased [Unknown]
  - Upper respiratory tract congestion [Unknown]
  - Throat irritation [Unknown]
  - Discomfort [Unknown]
  - Sneezing [Unknown]
  - Nasal pruritus [Unknown]
